FAERS Safety Report 9591535 (Version 1)
Quarter: 2013Q4

REPORT INFORMATION
  Report Type: Spontaneous
  Country: US (occurrence: US)
  Receive Date: 20131003
  Receipt Date: 20131003
  Transmission Date: 20140711
  Serious: No
  Sender: FDA-Public Use
  Company Number: US-AMGEN-USASP2012081847

PATIENT
  Sex: Female
  Weight: 86.17 kg

DRUGS (16)
  1. ENBREL [Suspect]
     Indication: PSORIATIC ARTHROPATHY
     Dosage: 50 MG, 2 TIMES/WK
     Route: 058
  2. JANUVIA [Concomitant]
     Dosage: 25 MG, UNK
  3. REQUIP [Concomitant]
     Dosage: 1 MG, UNK
  4. PROTONIX [Concomitant]
     Dosage: 20 MG, UNK
  5. AMARYL [Concomitant]
     Dosage: 2 MG, UNK
  6. METHOTREXATE [Concomitant]
     Dosage: 2.5 MG, UNK
  7. NORVASC [Concomitant]
     Dosage: 10 MG, UNK
  8. DIOVAN HCT [Concomitant]
     Dosage: 80/12.5 MG, UNK
  9. LANTUS [Concomitant]
     Dosage: 100 ML, UNK
  10. CLONAZEPAM [Concomitant]
     Dosage: 1 MG, UNK
  11. GABAPENTIN [Concomitant]
     Dosage: 300 MG, UNK
  12. METFORMIN [Concomitant]
     Dosage: 1000 MG, UNK
  13. METOPROLOL TARTRATE [Concomitant]
     Dosage: 25 MG, UNK
  14. VITAMIN B COMPLEX [Concomitant]
     Dosage: UNK
  15. CALCIUM D                          /00944201/ [Concomitant]
     Dosage: UNK, CHW
  16. MULTIVITAMINS, PLAIN [Concomitant]
     Dosage: UNK

REACTIONS (1)
  - Drug ineffective [Unknown]
